FAERS Safety Report 15043800 (Version 1)
Quarter: 2018Q2

REPORT INFORMATION
  Report Type: Spontaneous
  Country: GR (occurrence: GR)
  Receive Date: 20180621
  Receipt Date: 20180621
  Transmission Date: 20180711
  Serious: Yes (Other)
  Sender: FDA-Public Use
  Company Number: GR-MYLANLABS-2018M1042693

PATIENT
  Age: 24 Year
  Sex: Male

DRUGS (3)
  1. METHOTREXATE. [Suspect]
     Active Substance: METHOTREXATE
     Indication: T-CELL TYPE ACUTE LEUKAEMIA
     Dosage: TOTAL DOSE:  6.8GR/M2
  2. NELARABINE [Suspect]
     Active Substance: NELARABINE
     Indication: PRODUCT USED FOR UNKNOWN INDICATION
     Dosage: 1500MG/M2 D1,D3,D5 OF A 21-DAY CYCLE
  3. CYTARABINE. [Suspect]
     Active Substance: CYTARABINE
     Indication: T-CELL TYPE ACUTE LEUKAEMIA
     Dosage: TOTAL DOSE: 53GR/M2

REACTIONS (3)
  - Therapy partial responder [Unknown]
  - Disease recurrence [Unknown]
  - Neurotoxicity [Unknown]
